FAERS Safety Report 12793862 (Version 2)
Quarter: 2021Q2

REPORT INFORMATION
  Report Type: Spontaneous
  Country: US (occurrence: US)
  Receive Date: 20160929
  Receipt Date: 20210514
  Transmission Date: 20210716
  Serious: No
  Sender: FDA-Public Use
  Company Number: US-JAZZ-2016-US-011640

PATIENT
  Sex: Female

DRUGS (7)
  1. XYREM [Suspect]
     Active Substance: SODIUM OXYBATE
     Indication: CATAPLEXY
     Dosage: DOSE ADJUSTMENT
     Route: 048
     Dates: start: 201406, end: 201504
  2. XYREM [Suspect]
     Active Substance: SODIUM OXYBATE
     Dosage: 4 G, SECOND DOSE
     Route: 048
     Dates: start: 201504, end: 20160622
  3. RITALIN [Concomitant]
     Active Substance: METHYLPHENIDATE HYDROCHLORIDE
     Indication: NARCOLEPSY
  4. OMEPRAZOLE. [Concomitant]
     Active Substance: OMEPRAZOLE
  5. XYREM [Suspect]
     Active Substance: SODIUM OXYBATE
     Indication: NARCOLEPSY
     Dosage: 2.25 G, BID
     Route: 048
     Dates: start: 20140206, end: 201406
  6. XYREM [Suspect]
     Active Substance: SODIUM OXYBATE
     Dosage: 3.5 G, FIRST DOSE
     Route: 048
     Dates: start: 201504, end: 20160622
  7. ALLEGRA ALLERGY [Concomitant]
     Active Substance: FEXOFENADINE HYDROCHLORIDE

REACTIONS (1)
  - Exposure during pregnancy [Unknown]

NARRATIVE: CASE EVENT DATE: 2016
